FAERS Safety Report 10663769 (Version 1)
Quarter: 2014Q4

REPORT INFORMATION
  Report Type: Spontaneous
  Country: US (occurrence: None)
  Receive Date: 20141218
  Receipt Date: 20141218
  Transmission Date: 20150529
  Serious: Yes (Hospitalization, Other)
  Sender: FDA-Public Use
  Company Number: None

PATIENT
  Age: 55 Year
  Sex: Female
  Weight: 55.79 kg

DRUGS (1)
  1. HUMIRA [Suspect]
     Active Substance: ADALIMUMAB
     Indication: CROHN^S DISEASE
     Dosage: EVERY TWO WEEKS, INJECTABLE PEN IN THIGHS + BELLY
     Dates: start: 20140821, end: 20141106

REACTIONS (7)
  - Pancreatitis [None]
  - Paraesthesia [None]
  - Psoriasis [None]
  - Abdominal pain [None]
  - Diverticulum [None]
  - Haemorrhage [None]
  - Fungal infection [None]

NARRATIVE: CASE EVENT DATE: 20141118
